FAERS Safety Report 16536226 (Version 1)
Quarter: 2019Q3

REPORT INFORMATION
  Report Type: Spontaneous
  Country: US (occurrence: US)
  Receive Date: 20190705
  Receipt Date: 20190705
  Transmission Date: 20191004
  Serious: No
  Sender: FDA-Public Use
  Company Number: US-PFIZER INC-2019285936

PATIENT
  Age: 65 Year
  Sex: Female

DRUGS (1)
  1. SILVADENE [Suspect]
     Active Substance: SILVER SULFADIAZINE
     Dosage: UNK

REACTIONS (2)
  - Drug hypersensitivity [Unknown]
  - Urticaria [Unknown]
